FAERS Safety Report 7112173-0 (Version None)
Quarter: 2010Q4

REPORT INFORMATION
  Report Type: 
  Country: None (occurrence: None)
  Receive Date: 20101119
  Receipt Date: 20100203
  Transmission Date: 20110411
  Serious: No
  Sender: FDA-Public Use
  Company Number: A0842823A

PATIENT
  Age: 65 Year

DRUGS (2)
  1. AVODART [Suspect]
     Indication: BENIGN PROSTATIC HYPERPLASIA
     Dosage: .5MG PER DAY
     Route: 048
     Dates: start: 20090901
  2. VITAMINS [Concomitant]

REACTIONS (2)
  - LIBIDO DECREASED [None]
  - SEMEN VOLUME DECREASED [None]
